FAERS Safety Report 5713277-7 (Version None)
Quarter: 2008Q2

REPORT INFORMATION
  Report Type: 
  Country: None (occurrence: None)
  Receive Date: 20080422
  Receipt Date: 20080415
  Transmission Date: 20081010
  Serious: Yes (Death, Life-Threatening, Hospitalization)
  Sender: FDA-Public Use
  Company Number: FR-PFIZER INC-2008033596

PATIENT
  Sex: Female

DRUGS (7)
  1. XANAX [Suspect]
     Route: 048
  2. DICLOFENAC SODIUM [Suspect]
     Indication: ARTHRALGIA
     Route: 048
     Dates: start: 20060605, end: 20060615
  3. HYDROCORTISONE [Suspect]
     Route: 048
  4. EUPRESSYL [Suspect]
     Route: 048
  5. SPIRONOLACTONE [Suspect]
     Route: 048
  6. TRAMADOL HCL [Suspect]
  7. STILNOX [Suspect]
     Route: 048

REACTIONS (9)
  - ARRHYTHMIA [None]
  - DEEP VEIN THROMBOSIS [None]
  - HYPERKALAEMIA [None]
  - KIDNEY SMALL [None]
  - NEPHROPATHY TOXIC [None]
  - ORAL CANDIDIASIS [None]
  - PULMONARY EMBOLISM [None]
  - RENAL FAILURE ACUTE [None]
  - SKIN DISORDER [None]
